FAERS Safety Report 7263793-4 (Version None)
Quarter: 2011Q1

REPORT INFORMATION
  Report Type: 
  Country: None (occurrence: None)
  Receive Date: 20110130
  Receipt Date: 20101109
  Transmission Date: 20110831
  Serious: No
  Sender: FDA-Public Use
  Company Number: US-ABBOTT-10P-163-0684270-00

PATIENT
  Age: 53 Year
  Sex: Male

DRUGS (3)
  1. BENACAR [Concomitant]
     Indication: HYPERTENSION
  2. HUMIRA [Suspect]
     Indication: RHEUMATOID ARTHRITIS
     Dates: start: 20101103
  3. CELEXA [Concomitant]
     Indication: DEPRESSION

REACTIONS (2)
  - HEADACHE [None]
  - VISUAL IMPAIRMENT [None]
